FAERS Safety Report 21561751 (Version 1)
Quarter: 2022Q4

REPORT INFORMATION
  Report Type: Spontaneous
  Country: RU (occurrence: RU)
  Receive Date: 20221107
  Receipt Date: 20221107
  Transmission Date: 20230112
  Serious: Yes (Other)
  Sender: FDA-Public Use
  Company Number: RU-BAYER-2022P019722

PATIENT
  Age: 24 Year
  Sex: Female

DRUGS (1)
  1. DROSPIRENONE\ETHINYL ESTRADIOL [Suspect]
     Active Substance: DROSPIRENONE\ETHINYL ESTRADIOL
     Indication: Contraception
     Dosage: 20 MCG ETHINYLESTRADIOL + 3 MG DROSPIRENONE + 451 MCG CALCIUM LEVOMEFOLATE 1 TABLET ONCE A DAY
     Route: 048
     Dates: start: 202210, end: 202210

REACTIONS (4)
  - Dyspnoea [None]
  - Lip swelling [None]
  - Rash erythematous [None]
  - Pruritus [None]

NARRATIVE: CASE EVENT DATE: 20221001
